FAERS Safety Report 5203828-3 (Version None)
Quarter: 2007Q1

REPORT INFORMATION
  Report Type: 
  Country: None (occurrence: None)
  Receive Date: 20070108
  Receipt Date: 20070108
  Transmission Date: 20070707
  Serious: No
  Sender: FDA-Public Use
  Company Number: None

PATIENT
  Age: 50 Year
  Sex: Female
  Weight: 63.5036 kg

DRUGS (1)
  1. CHANTIX [Suspect]
     Indication: SMOKING CESSATION THERAPY
     Dosage: DON'T REMEMBER DON'T REMEMBER
     Dates: start: 20061001, end: 20061101

REACTIONS (4)
  - DRUG INTERACTION [None]
  - FEELING ABNORMAL [None]
  - NAUSEA [None]
  - PARANOIA [None]
